FAERS Safety Report 6871856-8 (Version None)
Quarter: 2010Q3

REPORT INFORMATION
  Report Type: 
  Country: None (occurrence: None)
  Receive Date: 20100723
  Receipt Date: 20100716
  Transmission Date: 20110219
  Serious: Yes (Other)
  Sender: FDA-Public Use
  Company Number: GXBR2010US01326

PATIENT
  Sex: Male
  Weight: 88.435 kg

DRUGS (1)
  1. AMOXICILLIN AND CLAVULANATE POTASSIUM [Suspect]
     Indication: SINUSITIS
     Dosage: 500/125MG BID
     Route: 048
     Dates: start: 20100524, end: 20100602

REACTIONS (7)
  - APHAGIA [None]
  - APHASIA [None]
  - DYSARTHRIA [None]
  - MOVEMENT DISORDER [None]
  - MYASTHENIA GRAVIS [None]
  - NECK PAIN [None]
  - WEIGHT DECREASED [None]
